FAERS Safety Report 7829396-5 (Version None)
Quarter: 2011Q4

REPORT INFORMATION
  Report Type: 
  Country: None (occurrence: None)
  Receive Date: 20111020
  Receipt Date: 20111017
  Transmission Date: 20120403
  Serious: Yes (Death)
  Sender: FDA-Public Use
  Company Number: US-B.I. PHARMACEUTICALS,INC./RIDGEFIELD-2011-BP-15255BP

PATIENT
  Sex: Male
  Weight: 89.81 kg

DRUGS (11)
  1. FLOMAX [Concomitant]
     Indication: PROSTATOMEGALY
     Dosage: 0.4 MG
     Route: 048
     Dates: start: 20100830, end: 20110520
  2. LIPITOR [Concomitant]
     Indication: BLOOD CHOLESTEROL INCREASED
     Dosage: 10 MG
     Route: 048
     Dates: start: 20040705, end: 20110501
  3. LASIX [Concomitant]
     Indication: OEDEMA
     Dosage: 40 MG
     Route: 048
     Dates: start: 20110216, end: 20110520
  4. OXYGEN [Concomitant]
     Indication: CHRONIC OBSTRUCTIVE PULMONARY DISEASE
  5. PRADAXA [Suspect]
     Indication: AORTIC DISORDER
  6. DULERA ORAL INHALATION [Concomitant]
     Route: 048
  7. SPIRIVA [Concomitant]
     Indication: CHRONIC OBSTRUCTIVE PULMONARY DISEASE
     Dosage: 18 MCG
     Route: 055
     Dates: start: 20050526, end: 20110520
  8. PROAIR HFA [Concomitant]
     Route: 048
  9. MUCINEX [Concomitant]
     Indication: CHRONIC OBSTRUCTIVE PULMONARY DISEASE
     Dosage: 600 MG
     Route: 048
     Dates: end: 20110520
  10. PRADAXA [Suspect]
     Indication: ATRIAL FIBRILLATION
     Dosage: 300 MG
     Route: 048
     Dates: start: 20110328, end: 20110518
  11. AVODART [Concomitant]
     Indication: PROSTATOMEGALY
     Dosage: 0.5 MG
     Route: 048
     Dates: start: 20080620, end: 20110520

REACTIONS (4)
  - CEREBROVASCULAR ACCIDENT [None]
  - BRAIN OEDEMA [None]
  - BODY TEMPERATURE INCREASED [None]
  - UNRESPONSIVE TO STIMULI [None]
